FAERS Safety Report 23244857 (Version 1)
Quarter: 2023Q4

REPORT INFORMATION
  Report Type: Other
  Country: None (occurrence: US)
  Receive Date: 20231130
  Receipt Date: 20231130
  Transmission Date: 20240109
  Serious: No
  Sender: FDA-Public Use
  Company Number: US-Nova Laboratories Limited-2148822

PATIENT
  Age: 36 Year
  Sex: Female

DRUGS (5)
  1. PURIXAN [Suspect]
     Active Substance: MERCAPTOPURINE
     Indication: Metastatic cutaneous Crohn^s disease
  2. ADALIMUMAB [Suspect]
     Active Substance: ADALIMUMAB\ISOPROPYL ALCOHOL
  3. CERTOLIZUMAB [Suspect]
     Active Substance: CERTOLIZUMAB
  4. METHOTREXATE [Suspect]
     Active Substance: METHOTREXATE
  5. INFLIXIMAB [Suspect]
     Active Substance: INFLIXIMAB
     Route: 058

REACTIONS (2)
  - Drug ineffective for unapproved indication [Unknown]
  - Off label use [None]
